FAERS Safety Report 9393204 (Version 2)
Quarter: 2013Q3

REPORT INFORMATION
  Report Type: Spontaneous
  Country: US (occurrence: US)
  Receive Date: 20130710
  Receipt Date: 20130726
  Transmission Date: 20140515
  Serious: No
  Sender: FDA-Public Use
  Company Number: US-009507513-1306USA011128

PATIENT
  Age: 59 Year
  Sex: Female
  Weight: 68.27 kg

DRUGS (3)
  1. CLARITIN LIQUIGELS [Suspect]
     Indication: RHINORRHOEA
     Dosage: UNK, UNKNOWN
     Route: 048
     Dates: start: 20130603, end: 20130620
  2. CLARITIN LIQUIGELS [Suspect]
     Indication: EYE PRURITUS
  3. CLARITIN LIQUIGELS [Suspect]
     Indication: HYPERSENSITIVITY

REACTIONS (1)
  - Drug ineffective [Unknown]
